FAERS Safety Report 17908424 (Version 1)
Quarter: 2020Q2

REPORT INFORMATION
  Report Type: Spontaneous
  Country: GB (occurrence: GB)
  Receive Date: 20200617
  Receipt Date: 20200617
  Transmission Date: 20200714
  Serious: Yes (Hospitalization)
  Sender: FDA-Public Use
  Company Number: GB-PFIZER INC-2020226588

PATIENT
  Sex: Female

DRUGS (6)
  1. WATER FOR INJECTION [Concomitant]
     Active Substance: WATER
     Dosage: UNK UNK, 2X/DAY
     Route: 065
  2. TOBI PODHALER [Suspect]
     Active Substance: TOBRAMYCIN
     Indication: CYSTIC FIBROSIS
     Dosage: 112 MG, BIMONTHLY (TWICE A DAY, ALTERNATING MONTHS)
  3. CEFTAZIDIME. [Suspect]
     Active Substance: CEFTAZIDIME
     Indication: CYSTIC FIBROSIS
     Dosage: 1 G, BIMONTHLY
  4. BRONCHITOL [Concomitant]
     Dosage: 40 MG
  5. WATER FOR INJECTION [Concomitant]
     Active Substance: WATER
     Dosage: UNK
  6. BRONCHITOL [Concomitant]
     Dosage: 400 MG, 2X/DAY

REACTIONS (3)
  - Infection [Unknown]
  - Off label use [Unknown]
  - Malaise [Unknown]
